FAERS Safety Report 7708683-5 (Version None)
Quarter: 2011Q3

REPORT INFORMATION
  Report Type: 
  Country: None (occurrence: None)
  Receive Date: 20110819
  Receipt Date: 20110804
  Transmission Date: 20111222
  Serious: Yes (Death)
  Sender: FDA-Public Use
  Company Number: EU-2011-10135

PATIENT
  Sex: Male
  Weight: 87 kg

DRUGS (3)
  1. SAMSCA [Suspect]
     Indication: NEOPLASM
     Dosage: 15 MG MILLIGRAM(S), DAILY DOSE, ORAL
     Route: 048
     Dates: start: 20110516, end: 20110708
  2. SAMSCA [Suspect]
     Indication: HYPONATRAEMIA
     Dosage: 15 MG MILLIGRAM(S), DAILY DOSE, ORAL
     Route: 048
     Dates: start: 20110516, end: 20110708
  3. SAMSCA [Suspect]
     Indication: INAPPROPRIATE ANTIDIURETIC HORMONE SECRETION
     Dosage: 15 MG MILLIGRAM(S), DAILY DOSE, ORAL
     Route: 048
     Dates: start: 20110516, end: 20110708

REACTIONS (4)
  - LEG AMPUTATION [None]
  - PERIPHERAL EMBOLISM [None]
  - PULMONARY EMBOLISM [None]
  - PERIPHERAL ISCHAEMIA [None]
